FAERS Safety Report 9316557 (Version 3)
Quarter: 2014Q1

REPORT INFORMATION
  Report Type: Spontaneous
  Country: US (occurrence: US)
  Receive Date: 20130530
  Receipt Date: 20140121
  Transmission Date: 20141002
  Serious: No
  Sender: FDA-Public Use
  Company Number: US-PFIZER INC-2013163449

PATIENT
  Age: 57 Year
  Sex: Female
  Weight: 68.03 kg

DRUGS (4)
  1. LYRICA [Suspect]
     Indication: NEURALGIA
     Dosage: 300 MG (2 CAPSULES OF 150MG), 2X/DAY
     Route: 048
     Dates: start: 201201
  2. LYRICA [Suspect]
     Indication: HERPES ZOSTER
     Dosage: 150 MG, 2X/DAY
     Route: 048
  3. LYRICA [Suspect]
     Indication: POST HERPETIC NEURALGIA
     Dosage: 50 MG, 3X/DAY
     Route: 048
  4. XANAX [Concomitant]
     Dosage: UNK

REACTIONS (9)
  - Weight increased [Unknown]
  - Disturbance in attention [Unknown]
  - Insomnia [Unknown]
  - Nausea [Unknown]
  - Confusional state [Not Recovered/Not Resolved]
  - Anxiety [Not Recovered/Not Resolved]
  - Agitation [Not Recovered/Not Resolved]
  - Renal disorder [Unknown]
  - Rash generalised [Recovered/Resolved]
